FAERS Safety Report 7366567-9 (Version None)
Quarter: 2011Q1

REPORT INFORMATION
  Report Type: 
  Country: None (occurrence: None)
  Receive Date: 20110309
  Receipt Date: 20110225
  Transmission Date: 20110831
  Serious: Yes (Other)
  Sender: FDA-Public Use
  Company Number: RU-1185165

PATIENT
  Age: 63 Year
  Sex: Male

DRUGS (1)
  1. AZOPT [Suspect]
     Dosage: (OPHTHALMIC)
     Route: 047

REACTIONS (2)
  - KERATITIS [None]
  - CORNEAL EROSION [None]
